FAERS Safety Report 14479731 (Version 3)
Quarter: 2018Q2

REPORT INFORMATION
  Report Type: Spontaneous
  Country: US (occurrence: US)
  Receive Date: 20180202
  Receipt Date: 20180502
  Transmission Date: 20180711
  Serious: No
  Sender: FDA-Public Use
  Company Number: US-PFIZER INC-2018042801

PATIENT
  Age: 50 Year
  Sex: Female

DRUGS (3)
  1. XELJANZ XR [Suspect]
     Active Substance: TOFACITINIB CITRATE
     Indication: RHEUMATOID ARTHRITIS
     Dosage: 11 MG, 2X/DAY (ONE IN THE MORNING AND ONE AT NIGHT)
     Route: 048
     Dates: start: 2017, end: 2017
  2. XELJANZ XR [Suspect]
     Active Substance: TOFACITINIB CITRATE
     Dosage: 11 MG, ALTERNATE DAY
     Route: 048
  3. CETIRIZINE [Concomitant]
     Active Substance: CETIRIZINE HYDROCHLORIDE
     Dosage: UNK

REACTIONS (16)
  - Joint range of motion decreased [Unknown]
  - Overdose [Unknown]
  - Dry mouth [Not Recovered/Not Resolved]
  - Musculoskeletal stiffness [Unknown]
  - Fatigue [Unknown]
  - Dry eye [Not Recovered/Not Resolved]
  - Influenza [Unknown]
  - Disturbance in attention [Unknown]
  - Respiratory tract congestion [Unknown]
  - Product use issue [Unknown]
  - Intentional product misuse [Unknown]
  - Rash [Not Recovered/Not Resolved]
  - Hyperhidrosis [Not Recovered/Not Resolved]
  - Hepatic enzyme increased [Unknown]
  - Condition aggravated [Not Recovered/Not Resolved]
  - Feeling of body temperature change [Not Recovered/Not Resolved]

NARRATIVE: CASE EVENT DATE: 2017
